FAERS Safety Report 13437727 (Version 1)
Quarter: 2017Q2

REPORT INFORMATION
  Report Type: Spontaneous
  Country: US (occurrence: US)
  Receive Date: 20170412
  Receipt Date: 20170412
  Transmission Date: 20170830
  Serious: No
  Sender: FDA-Public Use
  Company Number: US-SA-2016SA235526

PATIENT
  Age: 39 Year
  Sex: Female
  Weight: 60 kg

DRUGS (2)
  1. ALLEGRA [Suspect]
     Active Substance: FEXOFENADINE HYDROCHLORIDE
     Indication: SEASONAL ALLERGY
     Route: 048
     Dates: start: 20161206, end: 20161217
  2. APRI [Concomitant]
     Active Substance: DESOGESTREL\ETHINYL ESTRADIOL
     Indication: CONTRACEPTION
     Route: 065

REACTIONS (3)
  - Nasal discomfort [Recovered/Resolved]
  - Epistaxis [Recovered/Resolved]
  - Nasal dryness [Recovered/Resolved]
